FAERS Safety Report 24656270 (Version 4)
Quarter: 2025Q3

REPORT INFORMATION
  Report Type: Spontaneous
  Country: EU (occurrence: EU)
  Receive Date: 20241124
  Receipt Date: 20250809
  Transmission Date: 20251021
  Serious: Yes (Hospitalization)
  Sender: ALEXION PHARMACEUTICALS
  Company Number: EU-ASTRAZENECA-202411EEA017203PL

PATIENT
  Age: 20 Year
  Sex: Female

DRUGS (4)
  1. SAPHNELO [Suspect]
     Active Substance: ANIFROLUMAB-FNIA
     Route: 065
  2. METHOTREXATE [Concomitant]
     Active Substance: METHOTREXATE
  3. Mycophenolate mofetil Stada [Concomitant]
  4. PREDNISONE [Concomitant]
     Active Substance: PREDNISONE

REACTIONS (7)
  - Pyrexia [Unknown]
  - Back pain [Unknown]
  - Chest discomfort [Unknown]
  - Peripheral swelling [Unknown]
  - Joint swelling [Unknown]
  - Chest pain [Unknown]
  - Dyspnoea [Unknown]
